FAERS Safety Report 6932084-0 (Version None)
Quarter: 2010Q3

REPORT INFORMATION
  Report Type: 
  Country: None (occurrence: None)
  Receive Date: 20100819
  Receipt Date: 20100813
  Transmission Date: 20110219
  Serious: Yes (Other)
  Sender: FDA-Public Use
  Company Number: A0857191A

PATIENT
  Age: 56 Year
  Sex: Male

DRUGS (4)
  1. PROMACTA [Suspect]
     Indication: HEPATIC CIRRHOSIS
     Dates: start: 20090908, end: 20100305
  2. ENBREL [Concomitant]
  3. PEG-INTRON [Concomitant]
  4. RIBAVIRIN [Concomitant]

REACTIONS (2)
  - DRUG INEFFECTIVE [None]
  - HEPATIC NEOPLASM MALIGNANT [None]
